FAERS Safety Report 4679550-9 (Version None)
Quarter: 2005Q2

REPORT INFORMATION
  Report Type: 
  Country: None (occurrence: None)
  Receive Date: 20050602
  Receipt Date: 20050204
  Transmission Date: 20051028
  Serious: Yes (Life-Threatening)
  Sender: FDA-Public Use
  Company Number: PHBS2005VE01861

PATIENT
  Age: 56 Year
  Sex: Female

DRUGS (3)
  1. FEMARA [Suspect]
     Indication: BREAST CANCER
     Dosage: 2.5 MG/DAY
     Route: 048
     Dates: start: 20040301, end: 20040501
  2. FEMARA [Suspect]
     Dosage: UNK, UNK
     Route: 048
     Dates: start: 20040901, end: 20041101
  3. ASPIRIN [Concomitant]
     Dosage: 100 MG/DAY

REACTIONS (4)
  - ARTHRALGIA [None]
  - FATIGUE [None]
  - HEPATIC HAEMATOMA [None]
  - SURGERY [None]
